FAERS Safety Report 7389300-3 (Version None)
Quarter: 2011Q2

REPORT INFORMATION
  Report Type: 
  Country: None (occurrence: None)
  Receive Date: 20110401
  Receipt Date: 20110322
  Transmission Date: 20111010
  Serious: Yes (Other)
  Sender: FDA-Public Use
  Company Number: A0873643B

PATIENT
  Sex: Female
  Weight: 72 kg

DRUGS (4)
  1. PEGASYS [Suspect]
     Dosage: 180MCG WEEKLY
     Route: 058
     Dates: start: 20090824, end: 20100204
  2. ELTROMBOPAG [Suspect]
     Indication: THROMBOCYTOPENIA
     Dosage: 25MG PER DAY
     Route: 048
     Dates: start: 20090810, end: 20090823
  3. PLACEBO [Suspect]
     Indication: THROMBOCYTOPENIA
     Route: 048
     Dates: start: 20090824, end: 20100207
  4. COPEGUS [Suspect]
     Route: 048
     Dates: start: 20090824, end: 20100207

REACTIONS (1)
  - CATARACT [None]
